FAERS Safety Report 10257395 (Version 1)
Quarter: 2014Q2

REPORT INFORMATION
  Report Type: Spontaneous
  Country: US (occurrence: US)
  Receive Date: 20140625
  Receipt Date: 20140625
  Transmission Date: 20141212
  Serious: No
  Sender: FDA-Public Use
  Company Number: US-BAYER-2014-082754

PATIENT
  Sex: Female

DRUGS (1)
  1. CIPRO [Suspect]
     Indication: URINARY TRACT INFECTION
     Dosage: UNK
     Dates: start: 20140522, end: 20140522

REACTIONS (7)
  - Headache [None]
  - Malaise [None]
  - Nausea [None]
  - Joint swelling [None]
  - Arthralgia [None]
  - Hypertonic bladder [None]
  - Tendon pain [None]
